FAERS Safety Report 5712529-4 (Version None)
Quarter: 2008Q2

REPORT INFORMATION
  Report Type: 
  Country: None (occurrence: None)
  Receive Date: 20080418
  Receipt Date: 20080410
  Transmission Date: 20081010
  Serious: Yes (Life-Threatening)
  Sender: FDA-Public Use
  Company Number: PHBS2008DE01503

PATIENT
  Age: 74 Year
  Sex: Female

DRUGS (12)
  1. PANTOZOL(PANTOPRAZOLE) TABLET [Suspect]
     Indication: PROPHYLAXIS AGAINST GASTROINTESTINAL ULCER
     Dosage: 40 MG, QD, ORAL
     Route: 048
     Dates: start: 20050420, end: 20050504
  2. TAVEGIL (NCH)(CLEMASTINE HYDROGEN FUMARATE) UNKNOWN [Suspect]
     Dosage: ORAL
     Route: 048
     Dates: start: 20050420, end: 20050504
  3. CLINDAMYCIN PHOSPHATE [Suspect]
     Indication: INFECTION
     Dates: start: 20050420, end: 20050504
  4. METOPROLOL SUCCINATE [Suspect]
     Dates: start: 20050101
  5. CETIRIZINE HCL [Suspect]
     Indication: HYPERSENSITIVITY
     Dosage: 5 MG/D
     Dates: start: 20050420, end: 20050504
  6. CIPROFLOXACIN [Suspect]
     Indication: INFECTION
     Dosage: ORAL
     Route: 048
     Dates: start: 20050420, end: 20050504
  7. ENALAPRIL MALEATE [Suspect]
     Indication: ESSENTIAL HYPERTENSION
     Dosage: 10 MG/D, ORAL
     Route: 048
     Dates: start: 20050420, end: 20050504
  8. LEVOTHYROXINE SODIUM [Suspect]
     Dosage: ORAL
     Route: 048
     Dates: start: 20050101
  9. ENABETA(ENALAPRIL MALEATE) [Suspect]
     Dosage: ORAL
     Route: 048
     Dates: start: 20050101
  10. KALINOR(POTASSIUM BICARBONATE, POTASSIUM CITRATE) [Suspect]
     Indication: ELECTROLYTE IMBALANCE
     Dosage: ORAL
     Route: 048
     Dates: start: 20050420, end: 20050504
  11. DICLAC (DICLOFENAC SODIUM) [Concomitant]
  12. TRAMADOL HCL [Concomitant]

REACTIONS (10)
  - ABDOMINAL PAIN UPPER [None]
  - BACTERIAL INFECTION [None]
  - CELLULITIS [None]
  - HYPOKALAEMIA [None]
  - MUCOUS MEMBRANE DISORDER [None]
  - NIKOLSKY'S SIGN [None]
  - OCULAR HYPERAEMIA [None]
  - PAIN OF SKIN [None]
  - POST PROCEDURAL INFECTION [None]
  - TOXIC EPIDERMAL NECROLYSIS [None]
